FAERS Safety Report 4370124-6 (Version None)
Quarter: 2004Q2

REPORT INFORMATION
  Report Type: 
  Country: None (occurrence: None)
  Receive Date: 20040527
  Receipt Date: 20040524
  Transmission Date: 20050107
  Serious: Yes (Other)
  Sender: FDA-Public Use
  Company Number: 200410281BYL

PATIENT
  Age: 65 Year
  Sex: Male

DRUGS (9)
  1. ASPIRIN [Suspect]
     Dosage: 200 MG, TOTAL DAILY, ORAL
     Route: 048
  2. TICLOPIDINE HCL [Suspect]
     Dosage: 200 MG, TOTAL DAILY, ORAL
     Route: 048
  3. ALDACTONE [Suspect]
     Dosage: 25 MG, QD, ORAL
     Route: 048
  4. ENALAPRIL MALEATE [Suspect]
     Dosage: 10 MG, TOTAL DAILY, ORAL
     Route: 048
  5. LASIX [Suspect]
     Dosage: 10 MG, TOTAL DAILY, ORAL
     Route: 048
  6. CARVEDILOL [Suspect]
     Dosage: 300 MG, TOTAL DAILY, ORAL
     Route: 048
  7. WARFARIN SODIUM [Suspect]
     Dosage: 1 MG, QD, ORAL
     Route: 048
  8. ALLOPURINOL [Suspect]
     Dosage: 100 MG, QD, ORAL
     Route: 048
  9. MEXITIL [Suspect]
     Dosage: 300 MG, TOTAL DAILY, ORAL
     Route: 048

REACTIONS (1)
  - AGRANULOCYTOSIS [None]
